FAERS Safety Report 10537003 (Version 4)
Quarter: 2015Q3

REPORT INFORMATION
  Report Type: Report from Study
  Country: US (occurrence: US)
  Receive Date: 20141022
  Receipt Date: 20150818
  Transmission Date: 20151125
  Serious: No
  Sender: FDA-Public Use
  Company Number: US-GILEAD-2014-0119105

PATIENT
  Age: 71 Year
  Sex: Female

DRUGS (7)
  1. REVATIO [Concomitant]
     Active Substance: SILDENAFIL CITRATE
  2. ASPIRIN                            /00002701/ [Concomitant]
     Active Substance: ASPIRIN
  3. CELEBREX [Concomitant]
     Active Substance: CELECOXIB
  4. XARELTO [Concomitant]
     Active Substance: RIVAROXABAN
  5. AMBRISENTAN [Suspect]
     Active Substance: AMBRISENTAN
     Indication: PULMONARY ARTERIAL HYPERTENSION
     Dosage: 10 MG, QD
     Route: 065
     Dates: start: 20140926, end: 20141114
  6. METOPROLOL [Concomitant]
     Active Substance: METOPROLOL
  7. DIOVAN [Concomitant]
     Active Substance: VALSARTAN

REACTIONS (4)
  - Gait disturbance [Unknown]
  - Nasal congestion [Recovering/Resolving]
  - Dyspnoea [Unknown]
  - Movement disorder [Unknown]

NARRATIVE: CASE EVENT DATE: 201410
